FAERS Safety Report 8294462-X (Version None)
Quarter: 2012Q2

REPORT INFORMATION
  Report Type: 
  Country: None (occurrence: None)
  Receive Date: 20120418
  Receipt Date: 20120414
  Transmission Date: 20120825
  Serious: Yes (Other)
  Sender: FDA-Public Use
  Company Number: PHHY2011CA64729

PATIENT
  Sex: Female

DRUGS (2)
  1. GILENYA [Suspect]
     Dosage: 0.5 MG, DAILY
     Route: 048
     Dates: start: 20111110
  2. GILENYA [Suspect]
     Indication: RELAPSING-REMITTING MULTIPLE SCLEROSIS
     Dosage: 0.5 MG, DAILY
     Route: 048
     Dates: start: 20110711

REACTIONS (3)
  - RETINAL EXUDATES [None]
  - ALOPECIA [None]
  - DECREASED APPETITE [None]
